FAERS Safety Report 21372968 (Version 2)
Quarter: 2022Q4

REPORT INFORMATION
  Report Type: Report from Study
  Country: CA (occurrence: CA)
  Receive Date: 20220924
  Receipt Date: 20221006
  Transmission Date: 20230113
  Serious: Yes (Hospitalization, Other)
  Sender: FDA-Public Use
  Company Number: CA-ABBVIE-4129403

PATIENT
  Sex: Female

DRUGS (1)
  1. RINVOQ [Suspect]
     Active Substance: UPADACITINIB
     Indication: Rheumatoid arthritis
     Route: 048
     Dates: start: 20211130, end: 20220903

REACTIONS (4)
  - Intestinal perforation [Unknown]
  - Faecaloma [Unknown]
  - Intestinal obstruction [Unknown]
  - Gastrointestinal disorder [Unknown]
